FAERS Safety Report 4821027-1 (Version None)
Quarter: 2005Q4

REPORT INFORMATION
  Report Type: 
  Country: None (occurrence: None)
  Receive Date: 20051104
  Receipt Date: 20051104
  Transmission Date: 20060501
  Serious: Yes (Life-Threatening, Other)
  Sender: FDA-Public Use
  Company Number: None

PATIENT
  Age: 58 Year
  Sex: Female
  Weight: 49.4421 kg

DRUGS (1)
  1. ADENOCARD [Suspect]
     Indication: SUPRAVENTRICULAR TACHYCARDIA
     Dosage: 6 MG
     Dates: start: 20051003

REACTIONS (9)
  - ABNORMAL SENSATION IN EYE [None]
  - CARDIAC ARREST [None]
  - DEPRESSED LEVEL OF CONSCIOUSNESS [None]
  - DIZZINESS [None]
  - DYSPNOEA [None]
  - HEADACHE [None]
  - NERVOUS SYSTEM DISORDER [None]
  - THROAT TIGHTNESS [None]
  - VISUAL DISTURBANCE [None]
